FAERS Safety Report 11416755 (Version 4)
Quarter: 2015Q4

REPORT INFORMATION
  Report Type: Report from Study
  Country: US (occurrence: US)
  Receive Date: 20150825
  Receipt Date: 20151029
  Transmission Date: 20160304
  Serious: No
  Sender: FDA-Public Use
  Company Number: PHEH2015US015467

PATIENT
  Sex: Female

DRUGS (4)
  1. EXTAVIA [Suspect]
     Active Substance: INTERFERON BETA-1B
     Indication: MULTIPLE SCLEROSIS
     Dosage: 0.0625 MG (0.25 ML), WEEK 1-2 (EVERY OTHER DAY)
     Route: 058
     Dates: start: 20150615
  2. EXTAVIA [Suspect]
     Active Substance: INTERFERON BETA-1B
     Dosage: 0.1875 MG (0.75 ML)WEEK 5-6 (EVERY OTHER DAY)
     Route: 058
  3. EXTAVIA [Suspect]
     Active Substance: INTERFERON BETA-1B
     Dosage: 0.125 MG (0.5 ML), WEEK 3-4 (EVERY OTHER DAY)
     Route: 058
  4. EXTAVIA [Suspect]
     Active Substance: INTERFERON BETA-1B
     Dosage: 0.25 MG (1 ML), WEEK 7+ (EVERY OTHER DAY)
     Route: 058

REACTIONS (7)
  - Influenza like illness [Unknown]
  - Product blister packaging issue [Unknown]
  - Toothache [Unknown]
  - Feeling abnormal [Unknown]
  - Loss of consciousness [Unknown]
  - Papule [Unknown]
  - Erythema [Unknown]
